FAERS Safety Report 15374788 (Version 1)
Quarter: 2018Q3

REPORT INFORMATION
  Report Type: Spontaneous
  Country: US (occurrence: US)
  Receive Date: 20180906
  Receipt Date: 20180906
  Transmission Date: 20181010
  Serious: Yes (Hospitalization)
  Sender: FDA-Public Use
  Company Number: None

PATIENT
  Sex: Female
  Weight: 48.15 kg

DRUGS (19)
  1. CARVEDILOL. [Concomitant]
     Active Substance: CARVEDILOL
  2. DOXYCYCLINE. [Concomitant]
     Active Substance: DOXYCYCLINE
  3. FUROSEMIDE. [Concomitant]
     Active Substance: FUROSEMIDE
  4. VITAMIN D [Concomitant]
     Active Substance: CHOLECALCIFEROL
  5. GABAPENTIN. [Concomitant]
     Active Substance: GABAPENTIN
  6. LEVOTHYROXINE. [Concomitant]
     Active Substance: LEVOTHYROXINE
  7. MULTIVITAMIN [Concomitant]
     Active Substance: VITAMINS
  8. PANTOPRAZOLE [Concomitant]
     Active Substance: PANTOPRAZOLE
  9. POTASSIUM CITRATE ER [Concomitant]
     Active Substance: POTASSIUM CITRATE
  10. SENNA LAXATIVE [Concomitant]
     Active Substance: SENNOSIDES
  11. DOCUSATE [Concomitant]
     Active Substance: DOCUSATE
  12. ATORVASTATIN [Concomitant]
     Active Substance: ATORVASTATIN
  13. PROMACTA [Suspect]
     Active Substance: ELTROMBOPAG OLAMINE
     Indication: IMMUNE THROMBOCYTOPENIC PURPURA
     Route: 048
     Dates: start: 20171116
  14. BASAGLAR [Concomitant]
     Active Substance: INSULIN GLARGINE
  15. FERROUS SULFATE. [Concomitant]
     Active Substance: FERROUS SULFATE
  16. APAP [Concomitant]
     Active Substance: ACETAMINOPHEN
  17. ALBUTEROL. [Concomitant]
     Active Substance: ALBUTEROL
  18. ASCORBIC ACID. [Concomitant]
     Active Substance: ASCORBIC ACID
  19. BRIMONIDINE TARTRATE. [Concomitant]
     Active Substance: BRIMONIDINE TARTRATE

REACTIONS (1)
  - Hospitalisation [None]
